FAERS Safety Report 18307990 (Version 1)
Quarter: 2020Q3

REPORT INFORMATION
  Report Type: Spontaneous
  Country: US (occurrence: US)
  Receive Date: 20200924
  Receipt Date: 20200924
  Transmission Date: 20201103
  Serious: No
  Sender: FDA-Public Use
  Company Number: US-ALVOGEN-2020-ALVOGEN-107914

PATIENT
  Age: 56 Year
  Sex: Male

DRUGS (1)
  1. GRALISE [Suspect]
     Active Substance: GABAPENTIN
     Indication: PRODUCT USED FOR UNKNOWN INDICATION
     Dosage: 1 TABLET BY MOUTH WITH DINNER DAILY, MAY INCREASE UP TO 3 TABLETS DAILY WITH DINNER AS DIRECTED
     Route: 048

REACTIONS (1)
  - Drug ineffective [Unknown]
